FAERS Safety Report 18432059 (Version 2)
Quarter: 2020Q4

REPORT INFORMATION
  Report Type: Other
  Country: US (occurrence: US)
  Receive Date: 20201027
  Receipt Date: 20201130
  Transmission Date: 20210114
  Serious: Yes (Other)
  Sender: FDA-Public Use
  Company Number: US-ROCHE-2697977

PATIENT
  Sex: Male

DRUGS (2)
  1. NUTROPIN [Suspect]
     Active Substance: SOMATROPIN
     Indication: HYPOPITUITARISM
     Dosage: NUSPIN 20 MG PEN, 3 MG DAILY, 6X/WEEK
     Route: 058
  2. NUTROPIN [Suspect]
     Active Substance: SOMATROPIN

REACTIONS (2)
  - No adverse event [Unknown]
  - Device physical property issue [Unknown]
